FAERS Safety Report 9772667 (Version 1)
Quarter: 2013Q4

REPORT INFORMATION
  Report Type: Spontaneous
  Country: FR (occurrence: FR)
  Receive Date: 20131219
  Receipt Date: 20131219
  Transmission Date: 20140711
  Serious: Yes (Life-Threatening, Hospitalization)
  Sender: FDA-Public Use
  Company Number: FR-PFIZER INC-2013360270

PATIENT
  Age: 22 Year
  Sex: Female
  Weight: 68 kg

DRUGS (9)
  1. MINIDRIL [Suspect]
     Indication: CONTRACEPTION
     Dosage: UNK
     Route: 048
     Dates: start: 2013, end: 201309
  2. DIANE-35 [Suspect]
     Indication: ACNE
     Dosage: UNK
     Route: 048
     Dates: start: 200905, end: 2013
  3. TETRALYSAL [Suspect]
     Indication: ACNE
     Dosage: 300 MG, 2X/DAY
     Route: 048
     Dates: start: 20131008
  4. TETRALYSAL [Suspect]
     Dosage: 300 MG, 1X/DAY
     Route: 048
     Dates: end: 20131112
  5. EPIDUO [Concomitant]
     Indication: ACNE
     Dosage: 2 DF (2 APPLICATIONS), DAILY
     Route: 061
     Dates: start: 20131008
  6. RUBOZINC [Concomitant]
     Dosage: UNK
  7. COD LIVER OIL [Concomitant]
     Dosage: UNK
  8. BEPANTHENE [Concomitant]
     Dosage: UNK
  9. EFFACNE [Concomitant]
     Dosage: UNK

REACTIONS (2)
  - Cardio-respiratory arrest [Recovered/Resolved]
  - Ventricular fibrillation [Recovered/Resolved]
